FAERS Safety Report 25790189 (Version 3)
Quarter: 2025Q4

REPORT INFORMATION
  Report Type: Report from Study
  Country: US (occurrence: US)
  Receive Date: 20250911
  Receipt Date: 20251027
  Transmission Date: 20260118
  Serious: Yes (Hospitalization, Other)
  Sender: GILEAD
  Company Number: US-GILEAD-2025-0727680

PATIENT
  Age: 63 Year
  Sex: Female

DRUGS (1)
  1. AMBRISENTAN [Suspect]
     Active Substance: AMBRISENTAN
     Indication: Pulmonary arterial hypertension
     Dosage: LETAIRIS 10MG ORALLY DAILY
     Route: 048
     Dates: start: 20250417

REACTIONS (7)
  - Pancreatitis [Not Recovered/Not Resolved]
  - Cholecystectomy [Unknown]
  - Biliary dilatation [Unknown]
  - Bile duct stone [Recovered/Resolved]
  - Fatigue [Unknown]
  - Enzyme level increased [Unknown]
  - Gastritis [Unknown]

NARRATIVE: CASE EVENT DATE: 20250904
